FAERS Safety Report 4283844-9 (Version None)
Quarter: 2004Q1

REPORT INFORMATION
  Report Type: 
  Country: None (occurrence: None)
  Receive Date: 20040130
  Receipt Date: 20020930
  Transmission Date: 20041129
  Serious: Yes (Death, Life-Threatening, Hospitalization)
  Sender: FDA-Public Use
  Company Number: B01200202672

PATIENT
  Age: 78 Year
  Sex: Male

DRUGS (2)
  1. CLOPIDOGREL TABLET [Suspect]
     Indication: ISCHAEMIC STROKE
     Dosage: 75 MG CLOPIDOGREL + 75 MG ASPIRIN DAILY; ORAL
     Route: 048
     Dates: start: 20011221, end: 20020904
  2. CLOPIDOGREL TABLET [Suspect]
     Indication: TRANSIENT ISCHAEMIC ATTACK
     Dosage: 75 MG CLOPIDOGREL + 75 MG ASPIRIN DAILY; ORAL
     Route: 048
     Dates: start: 20011221, end: 20020904

REACTIONS (11)
  - ACUTE MYOCARDIAL INFARCTION [None]
  - ANAEMIA [None]
  - BACTERIAL INFECTION [None]
  - CARDIAC ARREST [None]
  - COAGULOPATHY [None]
  - COMA [None]
  - GASTROINTESTINAL HAEMORRHAGE [None]
  - OXYGEN SATURATION DECREASED [None]
  - RUPTURED CEREBRAL ANEURYSM [None]
  - SEPSIS [None]
  - SUBARACHNOID HAEMORRHAGE [None]
